FAERS Safety Report 7864522-3 (Version None)
Quarter: 2011Q4

REPORT INFORMATION
  Report Type: 
  Country: None (occurrence: None)
  Receive Date: 20111028
  Receipt Date: 20111025
  Transmission Date: 20120403
  Serious: No
  Sender: FDA-Public Use
  Company Number: US-PFIZER INC-2011260086

PATIENT
  Sex: Female
  Weight: 68 kg

DRUGS (2)
  1. CALCIUM [Concomitant]
     Dosage: UNK
  2. PREMPRO [Suspect]
     Indication: HOT FLUSH
     Dosage: UNK
     Route: 048
     Dates: start: 20100101

REACTIONS (2)
  - DRUG INEFFECTIVE [None]
  - HOT FLUSH [None]
